FAERS Safety Report 10010046 (Version 1)
Quarter: 2014Q1

REPORT INFORMATION
  Report Type: Spontaneous
  Country: US (occurrence: US)
  Receive Date: 20140313
  Receipt Date: 20140313
  Transmission Date: 20141002
  Serious: Yes (Hospitalization, Other)
  Sender: FDA-Public Use
  Company Number: US-GILEAD-2014-0096663

PATIENT
  Sex: Male

DRUGS (14)
  1. LETAIRIS [Suspect]
     Indication: PULMONARY ARTERIAL HYPERTENSION
     Dosage: 10 MG, QD
     Route: 048
     Dates: start: 20101215
  2. ACCUPRIL [Concomitant]
  3. LASIX                              /00032601/ [Concomitant]
  4. PREDNISONE [Concomitant]
  5. QVAR [Concomitant]
  6. ALBUTEROL                          /00139501/ [Concomitant]
  7. SPIRIVA [Concomitant]
  8. SIMVASTATIN [Concomitant]
  9. GLIPIZIDE [Concomitant]
  10. METFORMIN [Concomitant]
  11. GLUCOSAMINE AND CHONDROITIN [Concomitant]
  12. POTASSIUM [Concomitant]
  13. OMEGA 3                            /01333901/ [Concomitant]
  14. MULTIVITAMIN                       /00097801/ [Concomitant]

REACTIONS (1)
  - Transfusion [Unknown]
